FAERS Safety Report 15098372 (Version 2)
Quarter: 2018Q3

REPORT INFORMATION
  Report Type: Spontaneous
  Country: US (occurrence: US)
  Receive Date: 20180702
  Receipt Date: 20180720
  Transmission Date: 20181010
  Serious: No
  Sender: FDA-Public Use
  Company Number: US-SA-2018SA148710

PATIENT
  Age: 29 Year
  Sex: Female

DRUGS (1)
  1. LANTUS SOLOSTAR [Suspect]
     Active Substance: INSULIN GLARGINE
     Dosage: 40 U, QD
     Route: 065
     Dates: start: 201802

REACTIONS (2)
  - Blood glucose abnormal [Not Recovered/Not Resolved]
  - Device defective [Unknown]
